FAERS Safety Report 9990220 (Version 1)
Quarter: 2014Q1

REPORT INFORMATION
  Report Type: Report from Study
  Country: US (occurrence: US)
  Receive Date: 20140310
  Receipt Date: 20140310
  Transmission Date: 20141002
  Serious: No
  Sender: FDA-Public Use
  Company Number: US-ABBVIE-13P-163-1137259-00

PATIENT
  Age: 38 Year
  Sex: Male
  Weight: 74.91 kg

DRUGS (3)
  1. HUMIRA [Suspect]
     Indication: PSORIASIS
     Dosage: 80 MILLIGRAM LOADING DOSE
     Dates: start: 20130801, end: 20130801
  2. HUMIRA [Suspect]
     Dates: start: 20130808
  3. CLOBETASOL OINTMENT [Concomitant]
     Indication: PSORIASIS

REACTIONS (2)
  - Incorrect dose administered [Not Recovered/Not Resolved]
  - Confusional state [Unknown]
